FAERS Safety Report 13103314 (Version 1)
Quarter: 2017Q1

REPORT INFORMATION
  Report Type: Spontaneous
  Country: US (occurrence: US)
  Receive Date: 20170110
  Receipt Date: 20170110
  Transmission Date: 20170428
  Serious: No
  Sender: FDA-Public Use
  Company Number: US-009507513-1612USA011059

PATIENT

DRUGS (1)
  1. COZAAR [Suspect]
     Active Substance: LOSARTAN POTASSIUM
     Dosage: 100 MG/ONCE A DAY
     Route: 048

REACTIONS (2)
  - Product odour abnormal [Unknown]
  - No adverse event [Unknown]
